FAERS Safety Report 9018634 (Version 1)
Quarter: 2013Q1

REPORT INFORMATION
  Report Type: Spontaneous
  Country: US (occurrence: US)
  Receive Date: 20130118
  Receipt Date: 20130118
  Transmission Date: 20140127
  Serious: Yes (Life-Threatening, Hospitalization)
  Sender: FDA-Public Use
  Company Number: 2013SP000153

PATIENT
  Age: 64 Year
  Sex: Male
  Weight: 77 kg

DRUGS (10)
  1. LUNESTA [Suspect]
     Indication: INSOMNIA
     Route: 048
     Dates: start: 20130110
  2. LUNESTA [Suspect]
     Indication: INSOMNIA
     Route: 048
     Dates: start: 2010
  3. TEMAZEPAM [Concomitant]
     Indication: PRODUCT USED FOR UNKNOWN INDICATION
     Dates: end: 20130109
  4. PLAVIX [Concomitant]
     Indication: CORONARY ARTERY DISEASE
     Route: 048
  5. LISINOPRIL [Concomitant]
     Indication: CORONARY ARTERY DISEASE
     Route: 048
  6. METOPROLOL [Concomitant]
     Indication: CORONARY ARTERY DISEASE
     Route: 048
  7. SIMVASTATIN [Concomitant]
     Indication: CORONARY ARTERY DISEASE
     Route: 048
  8. ASPIRIN [Concomitant]
     Indication: CORONARY ARTERY DISEASE
     Route: 048
  9. ZOLOFT [Concomitant]
     Indication: ANXIETY
     Route: 048
     Dates: start: 2012
  10. ZOLOFT [Concomitant]
     Indication: INSOMNIA
     Route: 048
     Dates: start: 2012

REACTIONS (6)
  - Myocardial infarction [Recovered/Resolved with Sequelae]
  - Coronary artery disease [Not Recovered/Not Resolved]
  - Paradoxical drug reaction [Not Recovered/Not Resolved]
  - Feeling jittery [Not Recovered/Not Resolved]
  - Initial insomnia [Not Recovered/Not Resolved]
  - Restlessness [Not Recovered/Not Resolved]
